FAERS Safety Report 13264014 (Version 1)
Quarter: 2017Q1

REPORT INFORMATION
  Report Type: Spontaneous
  Country: US (occurrence: US)
  Receive Date: 20170222
  Receipt Date: 20170222
  Transmission Date: 20170428
  Serious: Yes (Other)
  Sender: FDA-Public Use
  Company Number: None

PATIENT
  Age: 55 Year
  Sex: Female
  Weight: 60.75 kg

DRUGS (6)
  1. CHLORHEXIDINE GLUCONATE 0.12% [Suspect]
     Active Substance: CHLORHEXIDINE GLUCONATE
     Indication: GINGIVAL SWELLING
     Dosage: TWICE A DAY 473 OUNCE(S); MOUTH RINSE/SPIT OUT?
     Dates: start: 20170221, end: 20170222
  2. ZZZZQUIL [Concomitant]
  3. CLINDAMYCIN. [Concomitant]
     Active Substance: CLINDAMYCIN
  4. CHLORHEXIDINE GLUCONATE 0.12% [Suspect]
     Active Substance: CHLORHEXIDINE GLUCONATE
     Indication: ABSCESS
     Dosage: TWICE A DAY 473 OUNCE(S); MOUTH RINSE/SPIT OUT?
     Dates: start: 20170221, end: 20170222
  5. ONE A DAY MULTIVITAMIN [Concomitant]
  6. IRON [Concomitant]
     Active Substance: IRON

REACTIONS (1)
  - Hypersensitivity [None]

NARRATIVE: CASE EVENT DATE: 20170222
